FAERS Safety Report 4618319-8 (Version None)
Quarter: 2005Q1

REPORT INFORMATION
  Report Type: 
  Country: None (occurrence: None)
  Receive Date: 20050324
  Receipt Date: 20050311
  Transmission Date: 20050727
  Serious: Yes (Hospitalization)
  Sender: FDA-Public Use
  Company Number: EWC041141580

PATIENT
  Age: 81 Year
  Sex: Female

DRUGS (3)
  1. EVISTA [Suspect]
     Indication: OSTEOPOROSIS
     Dosage: 60 MG/1 DAY
     Dates: start: 20001122, end: 20041217
  2. COVERSYL PLUS [Concomitant]
  3. CALTRATE PLUS [Concomitant]

REACTIONS (8)
  - BREAST CANCER FEMALE [None]
  - CYST [None]
  - FAT NECROSIS [None]
  - FIBROCYSTIC BREAST DISEASE [None]
  - HYPERPLASIA [None]
  - METASTASES TO LYMPH NODES [None]
  - PROCEDURAL SITE REACTION [None]
  - SCAR [None]
